FAERS Safety Report 17005441 (Version 1)
Quarter: 2019Q4

REPORT INFORMATION
  Report Type: Spontaneous
  Country: US (occurrence: US)
  Receive Date: 20191107
  Receipt Date: 20191107
  Transmission Date: 20200122
  Serious: Yes (Hospitalization)
  Sender: FDA-Public Use
  Company Number: US-TEVA-2019-US-1131406

PATIENT
  Sex: Male
  Weight: 120 kg

DRUGS (11)
  1. CLOZAPINE TEVA [Suspect]
     Active Substance: CLOZAPINE
     Indication: PARANOIA
     Route: 065
  2. COREG [Concomitant]
     Active Substance: CARVEDILOL
  3. FLOMAX [Concomitant]
     Active Substance: TAMSULOSIN HYDROCHLORIDE
  4. CLOZAPINE TEVA [Suspect]
     Active Substance: CLOZAPINE
     Indication: SCHIZOPHRENIA
  5. LIPITOR [Concomitant]
     Active Substance: ATORVASTATIN CALCIUM
  6. NEURONTIN [Concomitant]
     Active Substance: GABAPENTIN
  7. CLOZAPINE. [Suspect]
     Active Substance: CLOZAPINE
     Indication: SCHIZOPHRENIA
  8. CLOZAPINE. [Suspect]
     Active Substance: CLOZAPINE
     Indication: PARANOIA
     Route: 065
     Dates: start: 201903
  9. MELATONIN [Concomitant]
     Active Substance: MELATONIN
  10. BICALUTAMIDE. [Concomitant]
     Active Substance: BICALUTAMIDE
  11. LASIX [Concomitant]
     Active Substance: FUROSEMIDE

REACTIONS (4)
  - Neutrophil count abnormal [Unknown]
  - Drug level changed [Unknown]
  - Adverse event [Unknown]
  - Product use in unapproved indication [Unknown]
